FAERS Safety Report 7633410-X (Version None)
Quarter: 2011Q3

REPORT INFORMATION
  Report Type: 
  Country: None (occurrence: None)
  Receive Date: 20110725
  Receipt Date: 20110713
  Transmission Date: 20111222
  Serious: Yes (Congenital Anomaly, Other)
  Sender: FDA-Public Use
  Company Number: US-PFIZER INC-2011159885

PATIENT
  Sex: Female
  Weight: 2.68 kg

DRUGS (4)
  1. ZOLOFT [Suspect]
     Dosage: 50 MG, UNK
     Route: 064
     Dates: start: 20100301
  2. ZOLOFT [Suspect]
     Dosage: 25 MG, UNK
     Route: 064
     Dates: start: 20100101
  3. LORAZEPAM [Concomitant]
     Dosage: UNK
  4. ZOLPIDEM [Concomitant]
     Dosage: UNK

REACTIONS (5)
  - DILATATION VENTRICULAR [None]
  - MATERNAL EXPOSURE DURING PREGNANCY [None]
  - RIGHT ATRIAL DILATATION [None]
  - CYANOSIS [None]
  - ATRIAL SEPTAL DEFECT [None]
